FAERS Safety Report 17305688 (Version 1)
Quarter: 2020Q1

REPORT INFORMATION
  Report Type: Spontaneous
  Country: KR (occurrence: KR)
  Receive Date: 20200123
  Receipt Date: 20200123
  Transmission Date: 20200409
  Serious: Yes (Other)
  Sender: FDA-Public Use
  Company Number: KR-MYLANLABS-2020M1007446

PATIENT
  Age: 57 Year
  Sex: Female

DRUGS (15)
  1. CYCLOPHOSPHAMIDE. [Suspect]
     Active Substance: CYCLOPHOSPHAMIDE
     Indication: BREAST CANCER METASTATIC
     Dosage: 4 CYCLES
     Route: 065
     Dates: start: 20120324, end: 20120525
  2. TRASTUZUMAB. [Suspect]
     Active Substance: TRASTUZUMAB
     Indication: BREAST CANCER METASTATIC
     Dosage: 18 CYCLES
     Route: 065
     Dates: start: 20120925, end: 20130916
  3. 5-FLUOROURACIL                     /00098801/ [Suspect]
     Active Substance: FLUOROURACIL
     Indication: BREAST CANCER METASTATIC
     Dosage: 3 CYCLES
     Route: 065
     Dates: start: 20180125, end: 20180316
  4. DOCETAXEL. [Suspect]
     Active Substance: DOCETAXEL
     Indication: BREAST CANCER METASTATIC
     Dosage: 4 CYCLES
     Route: 065
     Dates: start: 20120615, end: 20120817
  5. VINORELBINE [Suspect]
     Active Substance: VINORELBINE TARTRATE
     Indication: BREAST CANCER METASTATIC
     Dosage: 19 CYCLES
     Route: 065
     Dates: start: 20150821, end: 20161014
  6. DOXORUBICIN [Suspect]
     Active Substance: DOXORUBICIN
     Indication: BREAST CANCER METASTATIC
     Dosage: 4 CYCLES
     Route: 065
     Dates: start: 20120324, end: 20120525
  7. CAPECITABINE. [Suspect]
     Active Substance: CAPECITABINE
     Indication: BREAST CANCER METASTATIC
     Dosage: 24 CYCLES
     Route: 065
     Dates: start: 20140325, end: 20150723
  8. CYCLOPHOSPHAMIDE. [Suspect]
     Active Substance: CYCLOPHOSPHAMIDE
     Dosage: 3 CYCLES
     Route: 065
     Dates: start: 20180125, end: 20180316
  9. TRASTUZUMAB. [Suspect]
     Active Substance: TRASTUZUMAB
     Dosage: 19 CYCLES
     Route: 065
     Dates: start: 20150821, end: 20161014
  10. TRASTUZUMAB. [Suspect]
     Active Substance: TRASTUZUMAB
     Dosage: 6 CYCLES
     Route: 065
     Dates: start: 20180420, end: 20180810
  11. LAPATINIB [Suspect]
     Active Substance: LAPATINIB
     Indication: BREAST CANCER METASTATIC
     Dosage: 24 CYCLES
     Route: 065
     Dates: start: 20140325, end: 20150723
  12. LETROZOLE. [Suspect]
     Active Substance: LETROZOLE
     Indication: BREAST CANCER METASTATIC
     Dosage: 18 CYCLES
     Route: 065
     Dates: start: 20120925, end: 20140117
  13. TRASTUZUMAB EMTANSINE [Suspect]
     Active Substance: ADO-TRASTUZUMAB EMTANSINE
     Indication: BREAST CANCER METASTATIC
     Dosage: 19 CYCLES
     Route: 065
     Dates: start: 20161108, end: 20171204
  14. METHOTREXATE. [Suspect]
     Active Substance: METHOTREXATE
     Indication: BREAST CANCER METASTATIC
     Dosage: 3 CYCLES
     Route: 065
     Dates: start: 20180125, end: 20180316
  15. PACLITAXEL. [Suspect]
     Active Substance: PACLITAXEL
     Indication: BREAST CANCER METASTATIC
     Dosage: 6 CYCLES
     Route: 065
     Dates: start: 20180420, end: 20180810

REACTIONS (1)
  - Myelodysplastic syndrome [Recovering/Resolving]
